FAERS Safety Report 11150925 (Version 4)
Quarter: 2015Q3

REPORT INFORMATION
  Report Type: Spontaneous
  Country: GB (occurrence: GB)
  Receive Date: 20150601
  Receipt Date: 20150814
  Transmission Date: 20151125
  Serious: Yes (Death, Other)
  Sender: FDA-Public Use
  Company Number: GB-JNJFOC-20150424495

PATIENT

DRUGS (8)
  1. METHOTREXATE (METHOTREXATE SODIUM) [Suspect]
     Active Substance: METHOTREXATE SODIUM
     Indication: LYMPHOMA AIDS RELATED
     Route: 065
  2. IFOSFAMID [Suspect]
     Active Substance: IFOSFAMIDE
     Indication: LYMPHOMA AIDS RELATED
     Route: 065
  3. ETOPOSIDE. [Suspect]
     Active Substance: ETOPOSIDE
     Indication: LYMPHOMA AIDS RELATED
     Route: 065
  4. RITUXIMAB [Suspect]
     Active Substance: RITUXIMAB
     Indication: LYMPHOMA AIDS RELATED
     Route: 065
  5. DOXORUBICIN [Suspect]
     Active Substance: DOXORUBICIN
     Indication: LYMPHOMA AIDS RELATED
     Route: 042
  6. VINCRISTINE [Suspect]
     Active Substance: VINCRISTINE
     Indication: LYMPHOMA AIDS RELATED
     Route: 065
  7. CYTARABINE. [Suspect]
     Active Substance: CYTARABINE
     Indication: LYMPHOMA AIDS RELATED
     Route: 065
  8. CYCLOPHOSPHAMIDE. [Suspect]
     Active Substance: CYCLOPHOSPHAMIDE
     Indication: LYMPHOMA AIDS RELATED
     Route: 065

REACTIONS (9)
  - Diarrhoea [Unknown]
  - Renal failure [Unknown]
  - Condition aggravated [Fatal]
  - Disease progression [Fatal]
  - Bone marrow failure [Unknown]
  - Tumour lysis syndrome [Unknown]
  - Sepsis [Fatal]
  - Infection [Unknown]
  - Mucosal inflammation [Unknown]
